FAERS Safety Report 12244590 (Version 1)
Quarter: 2016Q2

REPORT INFORMATION
  Report Type: Spontaneous
  Country: US (occurrence: US)
  Receive Date: 20160407
  Receipt Date: 20160407
  Transmission Date: 20160815
  Serious: No
  Sender: FDA-Public Use
  Company Number: US-HOSPIRA-3034832

PATIENT
  Age: 53 Year
  Sex: Female
  Weight: 52.2 kg

DRUGS (1)
  1. CIPROFLOXACIN. [Suspect]
     Active Substance: CIPROFLOXACIN
     Indication: PREOPERATIVE CARE
     Dosage: X1
     Route: 042
     Dates: start: 20150916, end: 20150916

REACTIONS (2)
  - Injection site pain [Recovered/Resolved]
  - Pruritus [Recovered/Resolved]

NARRATIVE: CASE EVENT DATE: 20150916
